FAERS Safety Report 8667847 (Version 4)
Quarter: 2012Q4

REPORT INFORMATION
  Report Type: Report from Study
  Country: US (occurrence: US)
  Receive Date: 20120717
  Receipt Date: 20121113
  Transmission Date: 20130627
  Serious: Yes (Other)
  Sender: FDA-Public Use
  Company Number: US-JNJFOC-20120705328

PATIENT
  Age: 78 Year
  Sex: Male
  Weight: 99.79 kg

DRUGS (14)
  1. CISAPRIDE [Suspect]
     Indication: GASTROINTESTINAL MOTILITY DISORDER
     Route: 048
     Dates: start: 20120814
  2. CISAPRIDE [Suspect]
     Indication: GASTROINTESTINAL MOTILITY DISORDER
     Dosage: temporarily stopped
     Route: 048
     Dates: start: 20010329, end: 20120709
  3. CISAPRIDE [Suspect]
     Indication: GASTROOESOPHAGEAL REFLUX DISEASE
     Route: 048
     Dates: start: 20120814
  4. CISAPRIDE [Suspect]
     Indication: GASTROOESOPHAGEAL REFLUX DISEASE
     Dosage: temporarily stopped
     Route: 048
     Dates: start: 20010329, end: 20120709
  5. ACIPHEX [Concomitant]
     Indication: GASTROOESOPHAGEAL REFLUX DISEASE
     Route: 065
  6. MIRALAX [Concomitant]
     Indication: CONSTIPATION
     Route: 048
  7. CHELATED MAGNESIUM [Concomitant]
     Indication: MIGRAINE
     Route: 065
     Dates: start: 20030520
  8. NASONEX [Concomitant]
     Indication: SNORING
     Dosage: 2 spray/nostril
     Route: 045
  9. DIOVAN [Concomitant]
     Indication: ARTHRITIS
     Route: 065
     Dates: start: 20050817
  10. CELEBREX [Concomitant]
     Indication: ARTHRITIS
     Dosage: unspecified date in MAR- restarted (illigeble document)
     Route: 065
     Dates: start: 200603
  11. FLOMAX [Concomitant]
     Indication: PRODUCT USED FOR UNKNOWN INDICATION
     Route: 065
     Dates: start: 20060810
  12. LYRICA [Concomitant]
     Indication: ARTHRITIS
     Route: 065
     Dates: start: 20090513
  13. OXYCODONE [Concomitant]
     Indication: BACK PAIN
     Dosage: 3-5 daily
     Route: 065
     Dates: start: 20090109
  14. AVODART [Concomitant]
     Indication: PROSTATIC DISORDER
     Route: 065
     Dates: start: 20100218

REACTIONS (1)
  - Electrocardiogram QT prolonged [Recovered/Resolved]
